FAERS Safety Report 5981948-3 (Version None)
Quarter: 2008Q4

REPORT INFORMATION
  Report Type: 
  Country: None (occurrence: None)
  Receive Date: 20081205
  Receipt Date: 20080222
  Transmission Date: 20090506
  Serious: No
  Sender: FDA-Public Use
  Company Number: US-AMGEN-KDL266682

PATIENT
  Sex: Female

DRUGS (1)
  1. ENBREL [Suspect]
     Indication: PSORIASIS
     Route: 058
     Dates: start: 20080215

REACTIONS (6)
  - COLD SWEAT [None]
  - DIZZINESS [None]
  - HYPERHIDROSIS [None]
  - INJECTION SITE PAIN [None]
  - NAUSEA [None]
  - VISUAL IMPAIRMENT [None]
